FAERS Safety Report 7288123-3 (Version None)
Quarter: 2011Q1

REPORT INFORMATION
  Report Type: 
  Country: None (occurrence: None)
  Receive Date: 20110211
  Receipt Date: 20110202
  Transmission Date: 20110831
  Serious: Yes (Hospitalization)
  Sender: FDA-Public Use
  Company Number: CA-JNJFOC-20110201501

PATIENT
  Sex: Male
  Weight: 87.5 kg

DRUGS (2)
  1. REMICADE [Suspect]
     Indication: COLITIS ULCERATIVE
     Route: 042
  2. REMICADE [Suspect]
     Dosage: 31 TREATMENTS RECEIVED
     Route: 042

REACTIONS (2)
  - ANAL FISSURE [None]
  - ABSCESS [None]
